FAERS Safety Report 6339382-2 (Version None)
Quarter: 2009Q3

REPORT INFORMATION
  Report Type: 
  Country: None (occurrence: None)
  Receive Date: 20090903
  Receipt Date: 20090822
  Transmission Date: 20100115
  Serious: Yes (Hospitalization)
  Sender: FDA-Public Use
  Company Number: US-PFIZER INC-2006068459

PATIENT
  Sex: Female
  Weight: 59 kg

DRUGS (7)
  1. SUNITINIB MALATE [Suspect]
     Indication: GASTROINTESTINAL STROMAL TUMOUR
     Dosage: 12.5 MG DAILY TDD 37.5 MG
     Route: 048
     Dates: start: 20050519
  2. PROTONIX [Concomitant]
     Route: 048
  3. CITALOPRAM HYDROBROMIDE [Concomitant]
     Route: 048
  4. SYNTHROID [Concomitant]
     Route: 048
  5. TUMS [Concomitant]
     Route: 048
  6. METOCLOPRAMIDE [Concomitant]
     Route: 048
  7. LOPERAMIDE [Concomitant]
     Route: 048

REACTIONS (1)
  - NEUROLOGICAL SYMPTOM [None]
